FAERS Safety Report 23224339 (Version 1)
Quarter: 2023Q4

REPORT INFORMATION
  Report Type: Spontaneous
  Country: DE (occurrence: DE)
  Receive Date: 20231124
  Receipt Date: 20231124
  Transmission Date: 20240110
  Serious: Yes (Hospitalization)
  Sender: FDA-Public Use
  Company Number: DE-009507513-2311DEU001831

PATIENT
  Age: 14 Year
  Sex: Female

DRUGS (2)
  1. ACYCLOVIR [Suspect]
     Active Substance: ACYCLOVIR
     Indication: Product used for unknown indication
     Dosage: UNK
     Route: 065
     Dates: start: 20231020
  2. GARDASIL 9 [Suspect]
     Active Substance: HUMAN PAPILLOMAVIRUS TYPE 11 L1 CAPSID PROTEIN ANTIGEN\HUMAN PAPILLOMAVIRUS TYPE 16 L1 CAPSID PROTEI
     Indication: Prophylaxis
     Dosage: UNK
     Route: 030
     Dates: start: 20231009

REACTIONS (11)
  - Pyrexia [Unknown]
  - Genital blister [Unknown]
  - Vulval ulceration [Recovered/Resolved]
  - Oral mucosal blistering [Unknown]
  - Herpes simplex [Unknown]
  - Epstein-Barr virus antigen positive [Unknown]
  - Varicella virus test positive [Unknown]
  - Genital lesion [Unknown]
  - Liver function test increased [Unknown]
  - Headache [Recovered/Resolved]
  - Malaise [Recovered/Resolved]

NARRATIVE: CASE EVENT DATE: 20230101
